FAERS Safety Report 22942586 (Version 3)
Quarter: 2023Q4

REPORT INFORMATION
  Report Type: Other
  Country: US (occurrence: None)
  Receive Date: 20230914
  Receipt Date: 20231106
  Transmission Date: 20240109
  Serious: Yes (Hospitalization)
  Sender: FDA-Public Use
  Company Number: US-ROCHE-3419687

PATIENT
  Age: 78 Year
  Sex: Female

DRUGS (1)
  1. ESBRIET [Suspect]
     Active Substance: PIRFENIDONE
     Indication: Idiopathic pulmonary fibrosis
     Dosage: TAKE 1 TABLET BY MOUTH 3 TIMES A DAY WITH FOOD
     Route: 048

REACTIONS (5)
  - Depressed mood [Unknown]
  - Loss of consciousness [Unknown]
  - Blood pressure decreased [Unknown]
  - Dehydration [Unknown]
  - Underdose [Unknown]
